FAERS Safety Report 18577234 (Version 1)
Quarter: 2020Q4

REPORT INFORMATION
  Report Type: Report from Study
  Country: None (occurrence: US)
  Receive Date: 20201204
  Receipt Date: 20201204
  Transmission Date: 20210114
  Serious: Yes (Other)
  Sender: FDA-Public Use
  Company Number: US-ABBVIE-20K-163-3420773-00

PATIENT
  Age: 56 Year
  Sex: Female

DRUGS (1)
  1. HUMIRA [Suspect]
     Active Substance: ADALIMUMAB
     Indication: RHEUMATOID ARTHRITIS
     Route: 058

REACTIONS (10)
  - Tooth infection [Recovered/Resolved]
  - Urinary tract infection [Recovered/Resolved]
  - Tonsillitis [Recovered/Resolved]
  - Pharyngeal disorder [Unknown]
  - Abdominal pain upper [Unknown]
  - Ear infection [Recovered/Resolved]
  - Pain in extremity [Not Recovered/Not Resolved]
  - Respiratory tract infection [Recovered/Resolved]
  - Deafness [Not Recovered/Not Resolved]
  - Infection [Unknown]

NARRATIVE: CASE EVENT DATE: 202002
